FAERS Safety Report 6573381-0 (Version None)
Quarter: 2010Q1

REPORT INFORMATION
  Report Type: 
  Country: None (occurrence: None)
  Receive Date: 20100204
  Receipt Date: 20100204
  Transmission Date: 20100710
  Serious: Yes (Other)
  Sender: FDA-Public Use
  Company Number: None

PATIENT
  Sex: Female
  Weight: 68.0396 kg

DRUGS (3)
  1. METHOTREXATE [Suspect]
     Indication: RHEUMATOID ARTHRITIS
     Dosage: 6 TABS. ONCE WEEK ORAL
     Route: 048
     Dates: start: 20090901
  2. ATENOLOL [Concomitant]
  3. CRESTOR [Concomitant]

REACTIONS (2)
  - HEART RATE IRREGULAR [None]
  - TENSION [None]
